FAERS Safety Report 4961972-X (Version None)
Quarter: 2006Q2

REPORT INFORMATION
  Report Type: 
  Country: None (occurrence: None)
  Receive Date: 20060404
  Receipt Date: 20050928
  Transmission Date: 20061013
  Serious: Yes (Hospitalization)
  Sender: FDA-Public Use
  Company Number: US-MERCK-0509USA04408

PATIENT
  Age: 66 Year
  Sex: Male
  Weight: 77 kg

DRUGS (6)
  1. VIOXX [Suspect]
     Indication: ARTHRALGIA
     Route: 048
     Dates: start: 20030409, end: 20040713
  2. LIPITOR [Concomitant]
     Route: 065
  3. PLAVIX [Concomitant]
     Route: 065
  4. [THERAPY UNSPECIFIED] [Concomitant]
     Route: 065
  5. TOPROL-XL [Concomitant]
     Route: 065
  6. BEXTRA [Concomitant]
     Route: 065

REACTIONS (3)
  - ARTHROPATHY [None]
  - DIZZINESS [None]
  - MYOCARDIAL INFARCTION [None]
